FAERS Safety Report 9162729 (Version 2)
Quarter: 2013Q2

REPORT INFORMATION
  Report Type: Report from Study
  Country: JP (occurrence: JP)
  Receive Date: 20130314
  Receipt Date: 20130429
  Transmission Date: 20140414
  Serious: Yes (Life-Threatening, Hospitalization)
  Sender: FDA-Public Use
  Company Number: JP-PFIZER INC-2013083696

PATIENT
  Age: 76 Year
  Sex: Male
  Weight: 39 kg

DRUGS (3)
  1. XALKORI [Suspect]
     Indication: NON-SMALL CELL LUNG CANCER
     Dosage: 250 MG, 2X/DAY
     Route: 048
     Dates: start: 20120911, end: 20120918
  2. PARIET [Concomitant]
     Dosage: 10 MG ONCE DAILY
     Route: 048
     Dates: start: 20120708
  3. MAG-LAX [Concomitant]
     Dosage: 250 MG THREE TIMES DAILY
     Route: 048
     Dates: start: 20120817

REACTIONS (1)
  - Hypoglycaemia [Not Recovered/Not Resolved]
